FAERS Safety Report 7457348-6 (Version None)
Quarter: 2011Q2

REPORT INFORMATION
  Report Type: 
  Country: None (occurrence: None)
  Receive Date: 20110504
  Receipt Date: 20110428
  Transmission Date: 20111010
  Serious: Yes (Hospitalization, Other)
  Sender: FDA-Public Use
  Company Number: ES-VALEANT-2011VX001158

PATIENT
  Age: 63 Year
  Sex: Male
  Weight: 95 kg

DRUGS (6)
  1. VALIUM [Concomitant]
     Indication: HYPERTENSION
     Route: 048
     Dates: start: 20040101, end: 20110301
  2. AZATHIOPRINE SODIUM [Suspect]
     Indication: MYASTHENIA GRAVIS
     Route: 048
     Dates: start: 20110101
  3. JANUVIA [Concomitant]
     Indication: MYASTHENIA GRAVIS
     Route: 048
     Dates: start: 20110101
  4. MESTINON [Suspect]
     Indication: MYASTHENIA GRAVIS
     Route: 048
     Dates: start: 20110101
  5. CEFUROXIME SODIUM [Suspect]
     Indication: TOOTH INFECTION
     Route: 048
     Dates: start: 20110301, end: 20110301
  6. AMILORIDE HCL AND HYDROCHLOROTHIAZIDE [Concomitant]
     Indication: HYPERTENSION
     Route: 048
     Dates: start: 20040101

REACTIONS (8)
  - RESPIRATORY DISTRESS [None]
  - PRODUCT FORMULATION ISSUE [None]
  - PYREXIA [None]
  - URINARY TRACT INFECTION [None]
  - FLATULENCE [None]
  - ABDOMINAL DISCOMFORT [None]
  - TOOTH INFECTION [None]
  - GASTROINTESTINAL DISORDER [None]
